FAERS Safety Report 5883357-4 (Version None)
Quarter: 2008Q3

REPORT INFORMATION
  Report Type: 
  Country: None (occurrence: None)
  Receive Date: 20080915
  Receipt Date: 20080909
  Transmission Date: 20090109
  Serious: Yes (Hospitalization, Other)
  Sender: FDA-Public Use
  Company Number: US-CELGENEUS-163-21880-08020899

PATIENT
  Sex: Female

DRUGS (2)
  1. REVLIMID [Suspect]
     Indication: B-CELL LYMPHOMA
     Route: 048
     Dates: start: 20080122, end: 20080213
  2. PREDNISONE TAB [Concomitant]
     Indication: DRUG USE FOR UNKNOWN INDICATION
     Route: 065

REACTIONS (14)
  - ASTHENIA [None]
  - BRONCHITIS [None]
  - DEAFNESS [None]
  - EAR PAIN [None]
  - FEBRILE NEUTROPENIA [None]
  - INFECTION [None]
  - LYMPHADENOPATHY [None]
  - MALAISE [None]
  - NEUTROPENIA [None]
  - OEDEMA MOUTH [None]
  - ORAL MUCOSAL EXFOLIATION [None]
  - PULMONARY EMBOLISM [None]
  - STOMATITIS [None]
  - WHITE BLOOD CELL COUNT DECREASED [None]
